FAERS Safety Report 14725936 (Version 4)
Quarter: 2019Q1

REPORT INFORMATION
  Report Type: Spontaneous
  Country: US (occurrence: US)
  Receive Date: 20180406
  Receipt Date: 20190304
  Transmission Date: 20190417
  Serious: Yes (Other)
  Sender: FDA-Public Use
  Company Number: US-AMGEN-USASP2018043893

PATIENT
  Age: 3 Year
  Sex: Female

DRUGS (5)
  1. NPLATE [Suspect]
     Active Substance: ROMIPLOSTIM
     Dosage: 14 MUG/KG, UNK
     Route: 065
  2. NPLATE [Suspect]
     Active Substance: ROMIPLOSTIM
     Indication: PRODUCT USED FOR UNKNOWN INDICATION
     Dosage: 0.1 ML
     Route: 065
  3. RITUXIMAB. [Concomitant]
     Active Substance: RITUXIMAB
     Dosage: UNK
  4. PEPCID [Concomitant]
     Active Substance: FAMOTIDINE
     Indication: GASTROOESOPHAGEAL REFLUX DISEASE
     Dosage: 1.22 UNK, BID
  5. NPLATE [Suspect]
     Active Substance: ROMIPLOSTIM
     Dosage: 0.35 MUG/KG, UNK
     Route: 065

REACTIONS (10)
  - Eating disorder [Not Recovered/Not Resolved]
  - Speech disorder [Unknown]
  - Insomnia [Unknown]
  - Abdominal pain [Not Recovered/Not Resolved]
  - Retching [Unknown]
  - Off label use [Unknown]
  - Adverse drug reaction [Unknown]
  - Overdose [Unknown]
  - Platelet count decreased [Unknown]
  - Skin lesion [Unknown]
